FAERS Safety Report 9688993 (Version 1)
Quarter: 2013Q4

REPORT INFORMATION
  Report Type: Spontaneous
  Country: NL (occurrence: NL)
  Receive Date: 20131114
  Receipt Date: 20131114
  Transmission Date: 20140711
  Serious: Yes (Hospitalization, Disabling, Other)
  Sender: FDA-Public Use
  Company Number: NL-B.I. PHARMACEUTICALS,INC./RIDGEFIELD-2013-BI-36754GD

PATIENT
  Sex: Female

DRUGS (1)
  1. BISACODYL [Suspect]
     Dosage: UP TO 20 TABLETS/DAY
     Route: 048

REACTIONS (10)
  - Ileus [Recovered/Resolved with Sequelae]
  - Large intestine perforation [Recovered/Resolved with Sequelae]
  - Abdominal discomfort [Unknown]
  - Leukocytosis [Unknown]
  - Drug withdrawal syndrome [Unknown]
  - Calculus urinary [Unknown]
  - Nephrocalcinosis [Unknown]
  - Drug tolerance [Unknown]
  - Drug abuse [Unknown]
  - Cachexia [Unknown]
